FAERS Safety Report 8166336 (Version 2)
Quarter: 2012Q4

REPORT INFORMATION
  Report Type: 
  Country: US (occurrence: US)
  Receive Date: 20111003
  Receipt Date: 20121002
  Transmission Date: 20130627
  Serious: No
  Sender: FDA-Public Use
  Company Number: US-TYCO HEALTHCARE/MALLINCKRODT-T201101804

PATIENT

DRUGS (3)
  1. EXALGO EXTENDED RELEASE [Suspect]
     Dosage: UNK
  2. FORTESTA [Suspect]
     Dosage: UNK
  3. FENTORA [Concomitant]
     Dosage: UNK

REACTIONS (3)
  - Eye pain [Recovered/Resolved]
  - Abnormal sensation in eye [Recovered/Resolved]
  - Rash [Recovered/Resolved]
